FAERS Safety Report 5788973-6 (Version None)
Quarter: 2008Q2

REPORT INFORMATION
  Report Type: 
  Country: None (occurrence: None)
  Receive Date: 20080626
  Receipt Date: 20071221
  Transmission Date: 20081010
  Serious: No
  Sender: FDA-Public Use
  Company Number: US-ASTRAZENECA-2007UW28838

PATIENT
  Age: 62 Year
  Sex: Female
  Weight: 105.7 kg

DRUGS (19)
  1. PULMICORT RESPULES [Suspect]
     Indication: CHRONIC OBSTRUCTIVE PULMONARY DISEASE
     Dosage: 0.5 MG/DL BID
     Route: 055
     Dates: start: 20071202, end: 20071208
  2. PULMICORT RESPULES [Suspect]
     Indication: ASTHMA
     Dosage: 0.5 MG/DL BID
     Route: 055
     Dates: start: 20071202, end: 20071208
  3. CLONAZEPAM [Concomitant]
  4. ALPRAZOLAM [Concomitant]
  5. KLOR-CON [Concomitant]
  6. LOTREL [Concomitant]
  7. SINGULAIR [Concomitant]
  8. HYDROCODONE [Concomitant]
  9. METOPROLOL [Concomitant]
  10. FUROSEMIDE [Concomitant]
  11. ASPIRIN [Concomitant]
  12. BUSPAR [Concomitant]
  13. MULTI-VITAMIN [Concomitant]
  14. LEVOTHYROXINE SODIUM [Concomitant]
  15. PROTONIX [Concomitant]
  16. VYTORIN [Concomitant]
  17. HYZAAR [Concomitant]
  18. MUCINEX [Concomitant]
  19. TYLENOL PM [Concomitant]

REACTIONS (2)
  - BLOOD GLUCOSE INCREASED [None]
  - WEIGHT INCREASED [None]
